FAERS Safety Report 9617175 (Version 2)
Quarter: 2013Q4

REPORT INFORMATION
  Report Type: Spontaneous
  Country: GB (occurrence: GB)
  Receive Date: 20131011
  Receipt Date: 20131011
  Transmission Date: 20140711
  Serious: Yes (Death, Hospitalization)
  Sender: FDA-Public Use
  Company Number: GB-ACTAVIS-2012-23579

PATIENT
  Age: 87 Year
  Sex: Female
  Weight: 58 kg

DRUGS (13)
  1. INDAPAMIDE (UNKNOWN) [Suspect]
     Indication: HYPERTENSION
     Dosage: 2.5 MG, DAILY
     Route: 048
     Dates: start: 20120702, end: 20120719
  2. ATENOLOL [Concomitant]
     Indication: HYPERTENSION
     Dosage: 25 MG, DAILY, STARTED BEFORE 2005
     Route: 048
     Dates: end: 20120701
  3. BENDROFLUMETHIAZIDE [Concomitant]
     Indication: HYPERTENSION
     Dosage: 2.5 MG, DAILY, STARTED BEFORE 2005
     Route: 048
     Dates: end: 20120701
  4. AMIAS [Concomitant]
     Indication: PRODUCT USED FOR UNKNOWN INDICATION
     Dosage: 8 MG, DAILY
     Route: 048
  5. SIMVASTATIN [Concomitant]
     Indication: PRODUCT USED FOR UNKNOWN INDICATION
     Dosage: 40 MG, DAILY
     Route: 048
  6. HYDROCORTISONE [Concomitant]
     Indication: HYPOPITUITARISM
     Dosage: 20 MG, DAILY, IN THE MORINING
     Route: 065
  7. HYDROCORTISONE [Concomitant]
     Dosage: 10 MG, DAILY, AT NIGHT
     Route: 065
  8. LEVOTHYROXINE [Concomitant]
     Indication: HYPOPITUITARISM
     Dosage: 75 ?G, DAILY, 3 X 25 MICROGRAM
     Route: 065
  9. EVOREL CONTI [Concomitant]
     Indication: HORMONE REPLACEMENT THERAPY
     Route: 065
  10. ASPIRIN [Concomitant]
     Indication: PRODUCT USED FOR UNKNOWN INDICATION
     Route: 065
  11. PARACETAMOL [Concomitant]
     Indication: PAIN
     Dosage: 500 MG, 2 TO 4 TIMES A DAY
     Route: 065
  12. NATECAL D3 [Concomitant]
     Indication: OSTEOPOROSIS
     Dosage: 2 DF, DAILY
     Route: 065
     Dates: start: 2012
  13. PROTELOS [Concomitant]
     Indication: OSTEOPOROSIS
     Dosage: 2 G, DAILY
     Route: 065
     Dates: start: 2012

REACTIONS (5)
  - Gastric ulcer haemorrhage [Fatal]
  - Stevens-Johnson syndrome [Not Recovered/Not Resolved]
  - Erythema multiforme [Not Recovered/Not Resolved]
  - Hypokalaemia [Not Recovered/Not Resolved]
  - Decreased appetite [Not Recovered/Not Resolved]
